FAERS Safety Report 16103210 (Version 16)
Quarter: 2022Q4

REPORT INFORMATION
  Report Type: Other
  Country: GB (occurrence: GB)
  Receive Date: 20190322
  Receipt Date: 20221031
  Transmission Date: 20230112
  Serious: Yes (Hospitalization, Other)
  Sender: FDA-Public Use
  Company Number: GB-MACLEODS PHARMACEUTICALS US LTD-MAC2019020516

PATIENT

DRUGS (60)
  1. QUETIAPINE [Interacting]
     Active Substance: QUETIAPINE
     Indication: Depression
     Dosage: UNK (26-AUG-2015)
     Route: 048
  2. IVABRADINE [Interacting]
     Active Substance: IVABRADINE
     Indication: Angina pectoris
     Dosage: 5 MILLIGRAM, QD (11-FEB-2015 )
     Route: 065
  3. IVABRADINE [Interacting]
     Active Substance: IVABRADINE
     Dosage: 5 MILLIGRAM (TABLET,IVABRADINE HYDROCHLORIDE)
     Route: 065
     Dates: start: 20150211
  4. IVABRADINE [Interacting]
     Active Substance: IVABRADINE
     Dosage: 5 MILLIGRAM (TABLET, IVABRADINE HYDROCHLORIDE)
     Route: 065
     Dates: start: 20150211
  5. IVABRADINE [Interacting]
     Active Substance: IVABRADINE
     Dosage: 10 MILLIGRAM, BID
     Route: 065
     Dates: start: 20150211
  6. IVABRADINE [Interacting]
     Active Substance: IVABRADINE
     Dosage: 5 MILLIGRAM, BID; IVABRADINE HYDROCHLORIDE
     Route: 065
     Dates: start: 20150211
  7. IVABRADINE [Interacting]
     Active Substance: IVABRADINE
     Dosage: 5 MILLIGRAM, BID (TABLET)
     Route: 065
     Dates: start: 20150211
  8. IVABRADINE [Interacting]
     Active Substance: IVABRADINE
     Dosage: 5 MILLIGRAM, BID (TABLET)
     Route: 065
     Dates: start: 20150211
  9. IVABRADINE [Interacting]
     Active Substance: IVABRADINE
     Dosage: 5 MILLIGRAM, BID (12 HOURLY, IVABRADINE HYDROCHLORIDE)
     Route: 065
     Dates: start: 20150211
  10. OMEPRAZOLE [Interacting]
     Active Substance: OMEPRAZOLE
     Indication: Dyspepsia
     Dosage: UNK (16-JUN-2011 )
     Route: 048
  11. OMEPRAZOLE [Interacting]
     Active Substance: OMEPRAZOLE
     Indication: Duodenal ulcer
     Dosage: UNK, TABLET
     Route: 048
     Dates: start: 20140116
  12. OMEPRAZOLE [Interacting]
     Active Substance: OMEPRAZOLE
     Dosage: UNK, TABLET
     Route: 048
     Dates: start: 20140116
  13. OMEPRAZOLE [Interacting]
     Active Substance: OMEPRAZOLE
     Dosage: UNK, TABLET
     Route: 065
     Dates: start: 20110616
  14. RAMIPRIL [Interacting]
     Active Substance: RAMIPRIL
     Indication: Cardiac failure
     Dosage: 1.25 MILLIGRAM, QD (13-AUG-2013 TO 29-JUN-2016)
     Route: 048
  15. RAMIPRIL [Interacting]
     Active Substance: RAMIPRIL
     Dosage: 1 MILLIGRAM, QD  (13-AUG-2013 TO 29-JUN-2016)
     Route: 048
  16. RAMIPRIL [Interacting]
     Active Substance: RAMIPRIL
     Dosage: 1 MILLIGRAM (1.25 MG) (13-AUG-2013 TO 29-JUN-2016)
     Route: 048
  17. CARVEDILOL [Interacting]
     Active Substance: CARVEDILOL
     Indication: Angina pectoris
     Dosage: 25 MILLIGRAM, BID (16-JUN-2011)
     Route: 048
  18. CARVEDILOL [Interacting]
     Active Substance: CARVEDILOL
     Dosage: 25 MG, QD (25 MG, QD, MERUS PRODUCT FORMULATION, TABLET)(16-JUN-2011)
     Route: 065
  19. CARVEDILOL [Interacting]
     Active Substance: CARVEDILOL
     Dosage: 25 MILLIGRAM, BID (16-JUN-2011)
     Route: 048
  20. CARVEDILOL [Interacting]
     Active Substance: CARVEDILOL
     Dosage: 50 MILLIGRAM, QD (25 MG, BID)(16-JUN-2011)
     Route: 048
  21. BOCOCIZUMAB [Interacting]
     Active Substance: BOCOCIZUMAB
     Indication: Cardiovascular disorder
     Dosage: 150 MILLIGRAM , FREQUENCY- EVERY 2 WEEKS (SOLUTION FOR INJECTION, QOW)(08-SEP-2015)
     Route: 058
     Dates: end: 20161101
  22. BOCOCIZUMAB [Interacting]
     Active Substance: BOCOCIZUMAB
     Dosage: 25 MILLIGRAM, BID (MERUS PRODUCT FORMULATION :TABLET) (16-JUN-2011)
     Route: 065
  23. BOCOCIZUMAB [Interacting]
     Active Substance: BOCOCIZUMAB
     Dosage: UNK (SOLUTION FOR INJECTION)
     Route: 058
  24. BOCOCIZUMAB [Interacting]
     Active Substance: BOCOCIZUMAB
     Dosage: 50 MG, QD (25 MG, BID, SOLUTION FOR INJECTION) (16-JUN-2011)
     Route: 058
  25. ISOSORBIDE MONONITRATE [Interacting]
     Active Substance: ISOSORBIDE MONONITRATE
     Indication: Angina pectoris
     Dosage: 10 MILLIGRAM, QD, ORAL FORMULATION: DURULE (05-FEB-2016)
     Route: 048
  26. FUROSEMIDE [Interacting]
     Active Substance: FUROSEMIDE
     Indication: Left ventricular dysfunction
     Dosage: 40 MILLIGRAM, QD (TABLET)(02-APR-2016)
     Route: 065
  27. FUROSEMIDE [Interacting]
     Active Substance: FUROSEMIDE
     Indication: Lung disorder
     Dosage: 40 MILLIGRAM, QD; TABLET (02-APR-2016)
     Route: 065
  28. FUROSEMIDE [Interacting]
     Active Substance: FUROSEMIDE
     Indication: Pulmonary oedema
     Dosage: 40 MILLIGRAM, QD,(02-APR-2016)
     Route: 065
  29. FUROSEMIDE [Interacting]
     Active Substance: FUROSEMIDE
     Indication: Pleural effusion
     Dosage: UNK
     Route: 065
  30. FUROSEMIDE [Interacting]
     Active Substance: FUROSEMIDE
     Dosage: 80 MILLIGRAM, QD, TABLET (02-APR-2016)
     Route: 048
  31. NITROGLYCERIN [Concomitant]
     Active Substance: NITROGLYCERIN
     Indication: Pain
     Dosage: UNK (TABLET)(02-SEP-2013)
     Route: 065
  32. NITROGLYCERIN [Concomitant]
     Active Substance: NITROGLYCERIN
     Indication: Cardiovascular disorder
     Dosage: UNK
     Route: 065
  33. ENTRESTO [Concomitant]
     Active Substance: SACUBITRIL\VALSARTAN
     Indication: Left ventricular dysfunction
     Dosage: UNK, SACUBITRIL 49/VALSARTAN 51 (01-JUL-2016)
     Route: 048
  34. ENTRESTO [Concomitant]
     Active Substance: SACUBITRIL\VALSARTAN
     Indication: Ventricular dysfunction
     Dosage: UNK, SACUBITRIL 49/VALSARTAN 51(01-JUL-2016)
     Route: 048
  35. ENTRESTO [Concomitant]
     Active Substance: SACUBITRIL\VALSARTAN
     Dosage: UNK, SACUBITRIL 49/VALSARTAN 51 (01-JUL-2016)
     Route: 048
  36. ACETAMINOPHEN [Concomitant]
     Active Substance: ACETAMINOPHEN
     Indication: Pain in extremity
     Dosage: UNK (TABLET) (16-JUN-2011)
     Route: 065
  37. ACETAMINOPHEN [Concomitant]
     Active Substance: ACETAMINOPHEN
     Dosage: UNK (TABLET)(16-JUN-2011)
     Route: 065
  38. ACETAMINOPHEN [Concomitant]
     Active Substance: ACETAMINOPHEN
     Dosage: UNK (16-JUN-2011)
     Route: 065
  39. ACETAMINOPHEN [Concomitant]
     Active Substance: ACETAMINOPHEN
     Dosage: UNK
  40. METHOTREXATE [Concomitant]
     Active Substance: METHOTREXATE
     Indication: Psoriasis
     Dosage: UNK (TABLET) (27-JUL-2015)
     Route: 065
  41. BETAMETHASONE DIPROPIONATE\CLOTRIMAZOLE [Concomitant]
     Active Substance: BETAMETHASONE DIPROPIONATE\CLOTRIMAZOLE
     Indication: Psoriasis
     Dosage: UNK, CREAM (26-JUN-2015)
     Route: 065
  42. BETAMETHASONE DIPROPIONATE\CLOTRIMAZOLE [Concomitant]
     Active Substance: BETAMETHASONE DIPROPIONATE\CLOTRIMAZOLE
     Dosage: UNK, TABLET (26-JUN-2015)
     Route: 065
  43. ACETAMINOPHEN\CODEINE PHOSPHATE [Concomitant]
     Active Substance: ACETAMINOPHEN\CODEINE PHOSPHATE
     Indication: Pain in extremity
     Dosage: UNK (16-JUN-2011)
     Route: 065
  44. ACETAMINOPHEN\CODEINE PHOSPHATE [Concomitant]
     Active Substance: ACETAMINOPHEN\CODEINE PHOSPHATE
     Dosage: UNK (16-JUN-2011)
     Route: 065
  45. ACETAMINOPHEN\CODEINE PHOSPHATE [Concomitant]
     Active Substance: ACETAMINOPHEN\CODEINE PHOSPHATE
     Dosage: UNK (16-JUN-2011)
     Route: 065
  46. ACETAMINOPHEN\CODEINE PHOSPHATE [Concomitant]
     Active Substance: ACETAMINOPHEN\CODEINE PHOSPHATE
     Dosage: UNK (16-JUN-2011)
     Route: 065
  47. ACETAMINOPHEN\CODEINE PHOSPHATE [Concomitant]
     Active Substance: ACETAMINOPHEN\CODEINE PHOSPHATE
     Dosage: UNK (16-JUN-2011)
     Route: 065
  48. FOLIC ACID [Concomitant]
     Active Substance: FOLIC ACID
     Indication: Anaemia
     Dosage: UNK (11-DEC-2013)
     Route: 065
  49. SERTRALINE HYDROCHLORIDE [Concomitant]
     Active Substance: SERTRALINE HYDROCHLORIDE
     Indication: Depression
     Dosage: UNK (16-AUG-2011)
     Route: 065
  50. SERTRALINE HYDROCHLORIDE [Concomitant]
     Active Substance: SERTRALINE HYDROCHLORIDE
     Dosage: UNK (16-AUG-2011)
     Route: 065
  51. SERTRALINE HYDROCHLORIDE [Concomitant]
     Active Substance: SERTRALINE HYDROCHLORIDE
     Dosage: UNK, 49/51 (01-JUL-2016)
     Route: 065
  52. CODEINE PHOSPHATE [Concomitant]
     Active Substance: CODEINE PHOSPHATE
     Indication: Product used for unknown indication
     Dosage: UNK
     Route: 065
  53. CODEINE PHOSPHATE [Concomitant]
     Active Substance: CODEINE PHOSPHATE
     Dosage: UNK
     Route: 065
  54. CODEINE PHOSPHATE [Concomitant]
     Active Substance: CODEINE PHOSPHATE
     Dosage: UNK
     Route: 065
  55. ASPIRIN [Concomitant]
     Active Substance: ASPIRIN
     Indication: Cardiovascular disorder
     Dosage: UNK (TABLET) (08-JUL-2013)
     Route: 065
  56. ASPIRIN [Concomitant]
     Active Substance: ASPIRIN
     Dosage: UNK (TABLET) (08-JUL-2013)
     Route: 065
  57. ASPIRIN [Concomitant]
     Active Substance: ASPIRIN
     Dosage: UNK (TABLET) (08-JUL-2013)
     Route: 065
  58. ATORVASTATIN [Concomitant]
     Active Substance: ATORVASTATIN
     Indication: Cardiovascular disorder
     Dosage: UNK (TABLET) (08-JUL-2013)
     Route: 065
  59. SACUBITRIL [Concomitant]
     Active Substance: SACUBITRIL
     Indication: Left ventricular dysfunction
     Dosage: UNK; 49/51 (01-JUN-2016)
     Route: 065
  60. SACUBITRIL [Concomitant]
     Active Substance: SACUBITRIL
     Dosage: UNK; 49/51 (01-JUL-2016)
     Route: 048

REACTIONS (14)
  - Cardiac failure [Unknown]
  - Angina pectoris [Unknown]
  - Angina pectoris [Unknown]
  - Pulmonary oedema [Unknown]
  - Ventricular dysfunction [Unknown]
  - Hypotension [Recovered/Resolved]
  - Psoriasis [Unknown]
  - Contusion [Recovered/Resolved]
  - Presyncope [Unknown]
  - Fluid retention [Unknown]
  - Anaemia [Unknown]
  - Oedema peripheral [Not Recovered/Not Resolved]
  - Contusion [Recovered/Resolved]
  - Drug interaction [Recovered/Resolved]

NARRATIVE: CASE EVENT DATE: 20151021
